FAERS Safety Report 21781192 (Version 1)
Quarter: 2022Q4

REPORT INFORMATION
  Report Type: Spontaneous
  Country: PL (occurrence: PL)
  Receive Date: 20221227
  Receipt Date: 20221227
  Transmission Date: 20230112
  Serious: Yes (Other)
  Sender: FDA-Public Use
  Company Number: PL-AMGEN-POLSP2022210958

PATIENT
  Age: 78 Year
  Sex: Male

DRUGS (9)
  1. FLUOROURACIL [Suspect]
     Active Substance: FLUOROURACIL
     Indication: Colorectal cancer metastatic
     Dosage: 600 MG/M2, Q2W (600 MILLIGRAM/SQ. METER, DAY 1 AND DAY 2)
     Route: 042
  2. FLUOROURACIL [Suspect]
     Active Substance: FLUOROURACIL
     Dosage: 400 MG/M2, Q2W (400 MILLIGRAM/SQ. METER, DAY 1 AND DAY 2)
     Route: 042
     Dates: start: 20201016
  3. FLUOROURACIL [Suspect]
     Active Substance: FLUOROURACIL
     Dosage: UNK UNK, Q3W
     Route: 042
  4. FILGRASTIM [Suspect]
     Active Substance: FILGRASTIM
     Indication: Prophylaxis
     Dosage: UNK
     Route: 065
     Dates: start: 2020
  5. VECTIBIX [Suspect]
     Active Substance: PANITUMUMAB
     Indication: Colorectal cancer metastatic
     Dosage: 6 MG/KG, Q2W (6 MILLIGRAM/KILOGRAM, Q2WK)
     Route: 042
     Dates: start: 20201016
  6. VECTIBIX [Suspect]
     Active Substance: PANITUMUMAB
     Dosage: UNK, Q3W
     Route: 042
  7. LEVOLEUCOVORIN [Suspect]
     Active Substance: LEVOLEUCOVORIN
     Indication: Colorectal cancer metastatic
     Dosage: 100 MG/M2, Q2W (100 MILLIGRAM/SQ. METER, Q2WK)
     Route: 042
     Dates: start: 20201016
  8. LEVOLEUCOVORIN [Suspect]
     Active Substance: LEVOLEUCOVORIN
     Dosage: UNK UNK, Q3W
     Route: 042
  9. OXALIPLATIN [Suspect]
     Active Substance: OXALIPLATIN
     Indication: Colorectal cancer metastatic
     Dosage: 85 MG/M2, Q2W (85 MILLIGRAM/SQ. METER, Q2WK)
     Route: 042
     Dates: start: 20201016, end: 2021

REACTIONS (7)
  - Thrombocytopenia [Unknown]
  - Neuropathy peripheral [Unknown]
  - Hypersensitivity [Unknown]
  - Fatigue [Unknown]
  - Blood glucose increased [Unknown]
  - Rash [Unknown]
  - Off label use [Unknown]

NARRATIVE: CASE EVENT DATE: 20210101
